FAERS Safety Report 12089195 (Version 1)
Quarter: 2016Q1

REPORT INFORMATION
  Report Type: Spontaneous
  Country: US (occurrence: None)
  Receive Date: 20160217
  Receipt Date: 20160217
  Transmission Date: 20160526
  Serious: Yes (Other)
  Sender: FDA-Public Use
  Company Number: None

PATIENT
  Age: 70 Year
  Sex: Female
  Weight: 62.14 kg

DRUGS (11)
  1. AXID [Concomitant]
     Active Substance: NIZATIDINE
  2. CLARINEX [Concomitant]
     Active Substance: DESLORATADINE
  3. CYMBALTA [Concomitant]
     Active Substance: DULOXETINE HYDROCHLORIDE
  4. CALCIUM WITH D [Concomitant]
     Active Substance: CALCIUM\VITAMIN D
  5. POTASSIUM [Concomitant]
     Active Substance: POTASSIUM
  6. FASLODEX [Concomitant]
     Active Substance: FULVESTRANT
  7. NEXIUM [Concomitant]
     Active Substance: ESOMEPRAZOLE MAGNESIUM
  8. VITAMINS [Concomitant]
     Active Substance: VITAMINS
  9. LEVAQUIN [Suspect]
     Active Substance: LEVOFLOXACIN
     Indication: SINUSITIS
     Dosage: ONE PILL ONCE DAILY TAKEN BY MOUTH
     Route: 048
     Dates: start: 20160108, end: 20160117
  10. SINGULAIR [Concomitant]
     Active Substance: MONTELUKAST SODIUM
  11. SYNTHROID [Concomitant]
     Active Substance: LEVOTHYROXINE SODIUM

REACTIONS (2)
  - Tendon rupture [None]
  - Arthralgia [None]

NARRATIVE: CASE EVENT DATE: 20160128
